FAERS Safety Report 8117694-X (Version None)
Quarter: 2012Q1

REPORT INFORMATION
  Report Type: 
  Country: None (occurrence: None)
  Receive Date: 20120203
  Receipt Date: 20120203
  Transmission Date: 20120608
  Serious: No
  Sender: FDA-Public Use
  Company Number: None

PATIENT
  Age: 19 Year
  Sex: Female
  Weight: 54.5 kg

DRUGS (4)
  1. LEXAPRO [Suspect]
     Indication: ANXIETY
     Dosage: LEXAPRO 5MG 1 UP TO 2QD PO STARTING DOSE
     Route: 048
     Dates: start: 20111207
  2. LEXAPRO [Suspect]
     Indication: DEPRESSION
     Dosage: LEXAPRO 5MG 1 UP TO 2QD PO STARTING DOSE
     Route: 048
     Dates: start: 20111207
  3. LEXAPRO [Suspect]
     Indication: ANXIETY
     Dosage: LEXAPRO 20MG 1QD PO
     Route: 048
     Dates: start: 20120124
  4. LEXAPRO [Suspect]
     Indication: DEPRESSION
     Dosage: LEXAPRO 20MG 1QD PO
     Route: 048
     Dates: start: 20120124

REACTIONS (1)
  - TRISMUS [None]
